FAERS Safety Report 8235327-9 (Version None)
Quarter: 2012Q1

REPORT INFORMATION
  Report Type: 
  Country: None (occurrence: None)
  Receive Date: 20120326
  Receipt Date: 20120315
  Transmission Date: 20120608
  Serious: Yes (Other)
  Sender: FDA-Public Use
  Company Number: US-ASTRAZENECA-2003UW09270

PATIENT
  Age: 65 Year
  Sex: Female
  Weight: 52.2 kg

DRUGS (6)
  1. SEROQUEL [Suspect]
     Route: 048
  2. SEROQUEL [Suspect]
     Route: 048
  3. SEROQUEL [Suspect]
     Indication: CHRONIC FATIGUE SYNDROME
     Route: 048
  4. SEROQUEL [Suspect]
     Indication: INSOMNIA
     Route: 048
  5. SEROQUEL [Suspect]
     Route: 048
  6. SEROQUEL [Suspect]
     Indication: MENTAL DISORDER
     Route: 048

REACTIONS (7)
  - OFF LABEL USE [None]
  - ANKLE FRACTURE [None]
  - HAEMOGLOBIN DECREASED [None]
  - BLOOD SODIUM DECREASED [None]
  - DYSURIA [None]
  - HAEMATOCRIT DECREASED [None]
  - RED BLOOD CELL COUNT DECREASED [None]
